FAERS Safety Report 4866757-0 (Version None)
Quarter: 2005Q4

REPORT INFORMATION
  Report Type: 
  Country: None (occurrence: None)
  Receive Date: 20051221
  Receipt Date: 20051209
  Transmission Date: 20060501
  Serious: Yes (Disabling)
  Sender: FDA-Public Use
  Company Number: 2005155964

PATIENT
  Age: 27 Year
  Sex: Female
  Weight: 48 kg

DRUGS (5)
  1. LYRICA [Suspect]
     Indication: NEURALGIA
     Dosage: 150 MG (75 MG, 2 IN 1 D), UNKNOWN
     Route: 065
     Dates: start: 20051001
  2. CLONAZEPAM [Concomitant]
  3. TRAMADOL HCL [Concomitant]
  4. POTASSIUM CHLORIDE [Concomitant]
  5. MAGNE-B6 (MAGNESIUM LACTATE, PYRIDOXINE HYDROCHLORIDE) [Concomitant]

REACTIONS (15)
  - AFFECTIVE DISORDER [None]
  - ANOREXIA [None]
  - CONFUSIONAL STATE [None]
  - DISTURBANCE IN ATTENTION [None]
  - DIZZINESS [None]
  - DRY MOUTH [None]
  - EXCITABILITY [None]
  - FATIGUE [None]
  - FEELING DRUNK [None]
  - IRRITABILITY [None]
  - PARAESTHESIA [None]
  - SOMNOLENCE [None]
  - THIRST [None]
  - TREMOR [None]
  - VERTIGO [None]
